FAERS Safety Report 10683413 (Version 2)
Quarter: 2014Q4

REPORT INFORMATION
  Report Type: Spontaneous
  Country: US (occurrence: US)
  Receive Date: 20141230
  Receipt Date: 20141230
  Transmission Date: 20150529
  Serious: Yes (Death, Life-Threatening, Hospitalization, Disabling, Other)
  Sender: FDA-Public Use
  Company Number: US-GLAXOSMITHKLINE-A1082242A

PATIENT
  Age: 69 Year
  Sex: Male
  Weight: 73.92 kg

DRUGS (6)
  1. PREDNISONE. [Concomitant]
     Active Substance: PREDNISONE
  2. VOTRIENT [Suspect]
     Active Substance: PAZOPANIB HYDROCHLORIDE
     Indication: PRODUCT USED FOR UNKNOWN INDICATION
     Dosage: 200 MG, U
     Route: 065
     Dates: start: 20140630
  3. PRIMIDONE. [Concomitant]
     Active Substance: PRIMIDONE
  4. PROGRAF [Concomitant]
     Active Substance: TACROLIMUS\TACROLIMUS ANHYDROUS
  5. ISRADIPINE. [Concomitant]
     Active Substance: ISRADIPINE
  6. MARINOL [Concomitant]
     Active Substance: DRONABINOL

REACTIONS (3)
  - Scapula fracture [Unknown]
  - Disease progression [Fatal]
  - Hospice care [Unknown]

NARRATIVE: CASE EVENT DATE: 20140728
